FAERS Safety Report 9444797 (Version 1)
Quarter: 2013Q3

REPORT INFORMATION
  Report Type: Spontaneous
  Country: US (occurrence: US)
  Receive Date: 20130807
  Receipt Date: 20130807
  Transmission Date: 20140515
  Serious: No
  Sender: FDA-Public Use
  Company Number: US-009507513-1307USA014430

PATIENT
  Sex: Female
  Weight: 61.68 kg

DRUGS (3)
  1. MIRALAX [Suspect]
     Indication: COLONOSCOPY
     Dosage: 238 G, ONCE
     Route: 048
     Dates: start: 20130513, end: 20130513
  2. MIRALAX [Suspect]
     Indication: MEDICAL OBSERVATION
  3. IMITREX (SUMATRIPTAN SUCCINATE) [Concomitant]
     Indication: MIGRAINE
     Dosage: UNK, UNKNOWN

REACTIONS (2)
  - Overdose [Unknown]
  - Off label use [Unknown]
